FAERS Safety Report 22048538 (Version 1)
Quarter: 2023Q1

REPORT INFORMATION
  Report Type: Spontaneous
  Country: US (occurrence: None)
  Receive Date: 20230226
  Receipt Date: 20230226
  Transmission Date: 20230418
  Serious: Yes (Life-Threatening, Hospitalization, Disabling, Other)
  Sender: FDA-Public Use
  Company Number: None

PATIENT
  Age: 58 Year
  Sex: Male
  Weight: 99 kg

DRUGS (2)
  1. XYLAZINE [Suspect]
     Active Substance: XYLAZINE
     Route: 042
     Dates: end: 20230114
  2. IBUPROFEN [Concomitant]
     Active Substance: IBUPROFEN

REACTIONS (8)
  - Skin ulcer [None]
  - Skin bacterial infection [None]
  - Osteomyelitis [None]
  - Foot amputation [None]
  - Localised infection [None]
  - Withdrawal syndrome [None]
  - Product use issue [None]
  - Adulterated product [None]

NARRATIVE: CASE EVENT DATE: 20230101
